FAERS Safety Report 7892339-2 (Version None)
Quarter: 2011Q4

REPORT INFORMATION
  Report Type: 
  Country: None (occurrence: None)
  Receive Date: 20111103
  Receipt Date: 20111103
  Transmission Date: 20120403
  Serious: No
  Sender: FDA-Public Use
  Company Number: None

PATIENT
  Sex: Male
  Weight: 185 kg

DRUGS (2)
  1. PREDNISONE [Suspect]
     Dosage: 210 MG
     Dates: end: 20100506
  2. TAXOTERE [Suspect]
     Dosage: 170 MG
     Dates: end: 20100426

REACTIONS (1)
  - NEUTROPHIL COUNT DECREASED [None]
